FAERS Safety Report 7585917-1 (Version None)
Quarter: 2011Q3

REPORT INFORMATION
  Report Type: 
  Country: None (occurrence: None)
  Receive Date: 20110701
  Receipt Date: 20110615
  Transmission Date: 20111222
  Serious: No
  Sender: FDA-Public Use
  Company Number: US-B.I. PHARMACEUTICALS,INC./RIDGEFIELD-2011-BP-15477BP

PATIENT
  Sex: Female

DRUGS (1)
  1. AGGRENOX [Suspect]
     Indication: CEREBROVASCULAR ACCIDENT PROPHYLAXIS
     Route: 048

REACTIONS (2)
  - FEELING ABNORMAL [None]
  - DIZZINESS [None]
